FAERS Safety Report 9178934 (Version 2)
Quarter: 2013Q4

REPORT INFORMATION
  Report Type: Spontaneous
  Country: US (occurrence: US)
  Receive Date: 20130321
  Receipt Date: 20131226
  Transmission Date: 20140711
  Serious: Yes (Other)
  Sender: FDA-Public Use
  Company Number: US-BAYER-2013-034333

PATIENT
  Age: 15 Year
  Sex: Female

DRUGS (8)
  1. YAZ [Suspect]
  2. YASMIN [Suspect]
  3. OCELLA [Suspect]
  4. ACETAMINOPHEN W/CODEINE [Concomitant]
     Dosage: UNK
     Dates: start: 20080206, end: 20080321
  5. IBUPROFEN [Concomitant]
     Dosage: UNK
     Dates: start: 20080206
  6. ROLAIDS [CALCIUM CARBONATE,MAGNESIUM HYDROXIDE] [Concomitant]
     Dosage: UNK
     Dates: start: 20080325
  7. PREVACID [Concomitant]
     Dosage: UNK
     Dates: start: 20080325
  8. IRON [Concomitant]
     Dosage: UNK
     Dates: start: 20080401

REACTIONS (4)
  - Cholecystectomy [None]
  - Cholecystitis chronic [None]
  - Injury [None]
  - Emotional distress [None]
